FAERS Safety Report 21396348 (Version 3)
Quarter: 2022Q4

REPORT INFORMATION
  Report Type: Report from Study
  Country: US (occurrence: US)
  Receive Date: 20220930
  Receipt Date: 20221216
  Transmission Date: 20230113
  Serious: Yes (Other)
  Sender: FDA-Public Use
  Company Number: US-PTx-2022000064

PATIENT
  Age: 48 Year
  Sex: Female
  Weight: 86.1 kg

DRUGS (3)
  1. SARGRAMOSTIM [Suspect]
     Active Substance: SARGRAMOSTIM
     Indication: Neutropenia
     Dosage: 250 MCG/M2, SC
     Route: 058
     Dates: start: 20210912, end: 20210916
  2. CEFEPIME [Concomitant]
     Active Substance: CEFEPIME HYDROCHLORIDE
     Indication: Evidence based treatment
     Dosage: 2 G IV
     Route: 042
     Dates: start: 20210913, end: 20210915
  3. DAPTOMYCIN [Concomitant]
     Active Substance: DAPTOMYCIN
     Indication: Evidence based treatment
     Dosage: 500 MG= 10 ML IV
     Route: 042
     Dates: start: 20210913, end: 20210915

REACTIONS (1)
  - Febrile neutropenia [Recovered/Resolved]

NARRATIVE: CASE EVENT DATE: 20210912
